FAERS Safety Report 6140595-3 (Version None)
Quarter: 2009Q2

REPORT INFORMATION
  Report Type: 
  Country: None (occurrence: None)
  Receive Date: 20090402
  Receipt Date: 20090326
  Transmission Date: 20091009
  Serious: Yes (Other)
  Sender: FDA-Public Use
  Company Number: US-SP-2009-01131

PATIENT
  Age: 58 Year
  Sex: Male

DRUGS (1)
  1. BOTULISM AB [Suspect]
     Indication: BOTULISM
     Route: 065
     Dates: start: 20081020

REACTIONS (3)
  - ANAPHYLACTIC REACTION [None]
  - RASH ERYTHEMATOUS [None]
  - URTICARIA [None]
